FAERS Safety Report 12876112 (Version 1)
Quarter: 2016Q4

REPORT INFORMATION
  Report Type: Spontaneous
  Country: US (occurrence: US)
  Receive Date: 20161024
  Receipt Date: 20161024
  Transmission Date: 20170207
  Serious: No
  Sender: FDA-Public Use
  Company Number: US-JAZZ-2016-US-015280

PATIENT
  Sex: Female

DRUGS (20)
  1. GLUCOSAMINE SULFATE [Concomitant]
     Active Substance: GLUCOSAMINE SULFATE
  2. MAGNESIUM GLUCONICUM [Concomitant]
  3. SKELAXIN [Concomitant]
     Active Substance: METAXALONE
  4. VITAMINS [Concomitant]
     Active Substance: VITAMINS
  5. LYRICA [Concomitant]
     Active Substance: PREGABALIN
  6. METHOCARBAMOL. [Concomitant]
     Active Substance: METHOCARBAMOL
  7. PREDNISONE. [Concomitant]
     Active Substance: PREDNISONE
  8. METHYLCOBALAMINE [Concomitant]
  9. XYREM [Suspect]
     Active Substance: SODIUM OXYBATE
     Dosage: 4 G, BID
     Route: 048
     Dates: start: 200710, end: 200811
  10. CYANOCOBALAMIN. [Concomitant]
     Active Substance: CYANOCOBALAMIN
  11. NORCO [Concomitant]
     Active Substance: ACETAMINOPHEN\HYDROCODONE BITARTRATE
  12. XYREM [Suspect]
     Active Substance: SODIUM OXYBATE
     Indication: SLEEP DISORDER
     Dosage: 3 G, BID
     Route: 048
     Dates: start: 200709, end: 200710
  13. XYREM [Suspect]
     Active Substance: SODIUM OXYBATE
     Dosage: 5 G, FIRST DOSE
     Route: 048
     Dates: start: 200811
  14. XYREM [Suspect]
     Active Substance: SODIUM OXYBATE
     Dosage: 4 G, SECOND DOSE
     Route: 048
     Dates: start: 200811
  15. VICODIN [Concomitant]
     Active Substance: ACETAMINOPHEN\HYDROCODONE BITARTRATE
  16. FISH OIL [Concomitant]
     Active Substance: FISH OIL
  17. L-GLUTAMINE [Concomitant]
  18. VITAMIN E [Concomitant]
     Active Substance: .ALPHA.-TOCOPHEROL
  19. CLONAZEPAM. [Concomitant]
     Active Substance: CLONAZEPAM
  20. VITAMIN C [Concomitant]
     Active Substance: ASCORBIC ACID

REACTIONS (2)
  - Procedural pain [Not Recovered/Not Resolved]
  - Tooth loss [Unknown]
